FAERS Safety Report 14120174 (Version 1)
Quarter: 2017Q4

REPORT INFORMATION
  Report Type: Spontaneous
  Country: ZA (occurrence: ZA)
  Receive Date: 20171024
  Receipt Date: 20171024
  Transmission Date: 20180321
  Serious: Yes (Death)
  Sender: FDA-Public Use
  Company Number: ZA-ASTRAZENECA-2017SF07671

PATIENT
  Sex: Male

DRUGS (6)
  1. LOMANOR [Concomitant]
     Active Substance: AMLODIPINE BESYLATE
  2. GANFORT [Concomitant]
     Active Substance: BIMATOPROST\TIMOLOL
     Dosage: 4/1.25 MG
  3. PREXUM PLUS [Concomitant]
     Active Substance: PERINDOPRIL ERBUMINE
     Dosage: 4/1.25 MG
  4. BRINZOLAMIDE [Concomitant]
     Active Substance: BRINZOLAMIDE
  5. CRESTOR [Suspect]
     Active Substance: ROSUVASTATIN CALCIUM
     Indication: BLOOD CHOLESTEROL
     Dosage: 5.0MG UNKNOWN
     Route: 048
  6. ECOTRIN [Concomitant]
     Active Substance: ASPIRIN

REACTIONS (1)
  - Gastric cancer [Fatal]
